FAERS Safety Report 14768022 (Version 1)
Quarter: 2018Q2

REPORT INFORMATION
  Report Type: Spontaneous
  Country: US (occurrence: US)
  Receive Date: 20180410
  Receipt Date: 20180410
  Transmission Date: 20180711
  Serious: Yes (Hospitalization)
  Sender: FDA-Public Use
  Company Number: None

PATIENT
  Age: 88 Year
  Sex: Female

DRUGS (10)
  1. ZYRTEC ALLGY [Concomitant]
  2. LANOXIN [Concomitant]
     Active Substance: DIGOXIN
  3. TRICOR [Concomitant]
     Active Substance: FENOFIBRATE
  4. INSULIN [Concomitant]
     Active Substance: INSULIN NOS
  5. FOLIC ACID. [Concomitant]
     Active Substance: FOLIC ACID
  6. PROGRAF [Suspect]
     Active Substance: TACROLIMUS\TACROLIMUS ANHYDROUS
     Indication: LIVER TRANSPLANT
     Route: 048
     Dates: start: 2004
  7. VERAPAMIL [Concomitant]
     Active Substance: VERAPAMIL HYDROCHLORIDE
  8. SOTALOL HCL [Concomitant]
     Active Substance: SOTALOL
  9. LOVASTATIN. [Concomitant]
     Active Substance: LOVASTATIN
  10. PLAVIX [Concomitant]
     Active Substance: CLOPIDOGREL BISULFATE

REACTIONS (1)
  - Surgery [None]

NARRATIVE: CASE EVENT DATE: 201804
